FAERS Safety Report 24526966 (Version 1)
Quarter: 2024Q4

REPORT INFORMATION
  Report Type: Report from Study
  Country: US (occurrence: US)
  Receive Date: 20241021
  Receipt Date: 20241021
  Transmission Date: 20250114
  Serious: Yes (Other)
  Sender: ASTELLAS
  Company Number: US-ASTELLAS-2024US020797

PATIENT
  Age: 85 Year
  Sex: Male

DRUGS (2)
  1. ENZALUTAMIDE [Suspect]
     Active Substance: ENZALUTAMIDE
     Indication: Product used for unknown indication
     Route: 065
  2. ORGOVYX [Concomitant]
     Active Substance: RELUGOLIX
     Indication: Prostate cancer
     Dosage: 120 MG, ONCE DAILY
     Route: 065
     Dates: start: 20230711

REACTIONS (2)
  - Atrial fibrillation [Unknown]
  - Hypertension [Unknown]
